FAERS Safety Report 12398003 (Version 1)
Quarter: 2016Q2

REPORT INFORMATION
  Report Type: Spontaneous
  Country: US (occurrence: None)
  Receive Date: 20160523
  Receipt Date: 20160523
  Transmission Date: 20160815
  Serious: Yes (Hospitalization)
  Sender: FDA-Public Use
  Company Number: None

PATIENT
  Age: 60 Year
  Sex: Male

DRUGS (16)
  1. CARVEDILOL. [Concomitant]
     Active Substance: CARVEDILOL
  2. ALBUTEROL. [Concomitant]
     Active Substance: ALBUTEROL
  3. DIAZEPAM. [Suspect]
     Active Substance: DIAZEPAM
     Route: 048
  4. IBUPROFEN. [Concomitant]
     Active Substance: IBUPROFEN
  5. OXYCODONE [Concomitant]
     Active Substance: OXYCODONE
  6. RITONAVIR. [Concomitant]
     Active Substance: RITONAVIR
  7. DIPHENHYDRAMINE. [Concomitant]
     Active Substance: DIPHENHYDRAMINE
  8. DOXYCYCLINE. [Concomitant]
     Active Substance: DOXYCYCLINE
  9. HYDROCORTISONE. [Concomitant]
     Active Substance: HYDROCORTISONE
  10. BUDESONIDE/FORMOTEROL [Concomitant]
     Active Substance: BUDESONIDE\FORMOTEROL
  11. DARUNAVIR [Concomitant]
     Active Substance: DARUNAVIR
  12. ENOXAPARIN [Concomitant]
     Active Substance: ENOXAPARIN
  13. OXYCODONE ER [Concomitant]
     Active Substance: OXYCODONE
  14. LORAZAPAM [Suspect]
     Active Substance: LORAZEPAM
     Indication: ANXIETY
     Route: 042
     Dates: start: 20160406, end: 20160406
  15. TIOTROPIUM [Concomitant]
     Active Substance: TIOTROPIUM
  16. WARFARIN [Concomitant]
     Active Substance: WARFARIN

REACTIONS (4)
  - Anxiety [None]
  - Respiratory acidosis [None]
  - Somnolence [None]
  - Refusal of treatment by patient [None]

NARRATIVE: CASE EVENT DATE: 20160406
